FAERS Safety Report 14453394 (Version 2)
Quarter: 2018Q1

REPORT INFORMATION
  Report Type: Report from Study
  Country: CA (occurrence: CA)
  Receive Date: 20180129
  Receipt Date: 20180205
  Transmission Date: 20180509
  Serious: Yes (Other)
  Sender: FDA-Public Use
  Company Number: CA-GLAXOSMITHKLINE-CA2017GSK084340

PATIENT
  Sex: Female

DRUGS (2)
  1. MEPOLIZUMAB [Suspect]
     Active Substance: MEPOLIZUMAB
     Indication: ASTHMA
     Dosage: 100 MG, Z,MONTHLY
     Route: 042
     Dates: start: 20170322
  2. MEPOLIZUMAB [Suspect]
     Active Substance: MEPOLIZUMAB
     Dosage: 100 MG, Z,MONTHLY
     Route: 042

REACTIONS (15)
  - Loss of consciousness [Unknown]
  - Injury [Unknown]
  - Visual impairment [Unknown]
  - Headache [Unknown]
  - Lung disorder [Unknown]
  - Back pain [Unknown]
  - Gait disturbance [Unknown]
  - Pain [Not Recovered/Not Resolved]
  - Nausea [Recovering/Resolving]
  - Pulmonary congestion [Unknown]
  - Fall [Unknown]
  - Diarrhoea [Recovering/Resolving]
  - Dizziness [Unknown]
  - Weight decreased [Unknown]
  - Vomiting [Recovering/Resolving]
